FAERS Safety Report 19500521 (Version 10)
Quarter: 2025Q2

REPORT INFORMATION
  Report Type: Report from Study
  Country: US (occurrence: US)
  Receive Date: 20210707
  Receipt Date: 20250516
  Transmission Date: 20250717
  Serious: Yes (Hospitalization, Other)
  Sender: TAKEDA
  Company Number: US-TAKEDA-2021TUS041613

PATIENT
  Age: 77 Year
  Sex: Female
  Weight: 61 kg

DRUGS (7)
  1. BRIGATINIB [Suspect]
     Active Substance: BRIGATINIB
     Indication: Lung neoplasm malignant
     Dosage: 180 MILLIGRAM, QD
     Dates: start: 20210622
  2. BRIGATINIB [Suspect]
     Active Substance: BRIGATINIB
     Dosage: 90 MILLIGRAM, QD
     Dates: start: 20211019
  3. BRIGATINIB [Suspect]
     Active Substance: BRIGATINIB
     Dosage: 90 MILLIGRAM, QD
  4. BRIGATINIB [Suspect]
     Active Substance: BRIGATINIB
     Dosage: 90 MILLIGRAM, QD
  5. BRIGATINIB [Suspect]
     Active Substance: BRIGATINIB
  6. PREDNISONE [Concomitant]
     Active Substance: PREDNISONE
  7. METHYLPREDNISOLONE [Concomitant]
     Active Substance: METHYLPREDNISOLONE

REACTIONS (13)
  - Haemorrhage [Unknown]
  - Eye disorder [Unknown]
  - Cataract [Unknown]
  - Pneumonia [Unknown]
  - Post procedural haemorrhage [Unknown]
  - Gingival bleeding [Unknown]
  - Drug intolerance [Unknown]
  - Product dose omission issue [Unknown]
  - Saliva discolouration [Unknown]
  - Weight increased [Unknown]
  - Heart rate decreased [Unknown]
  - Nausea [Unknown]
  - Diarrhoea [Unknown]

NARRATIVE: CASE EVENT DATE: 20210601
